FAERS Safety Report 4698931-0 (Version None)
Quarter: 2005Q2

REPORT INFORMATION
  Report Type: 
  Country: None (occurrence: None)
  Receive Date: 20050624
  Receipt Date: 20050520
  Transmission Date: 20051028
  Serious: Yes (Death, Life-Threatening, Hospitalization, Other)
  Sender: FDA-Public Use
  Company Number: IT-BRISTOL-MYERS SQUIBB COMPANY-12977070

PATIENT
  Age: 70 Year
  Sex: Male
  Weight: 56 kg

DRUGS (10)
  1. CARBOPLATIN [Suspect]
     Indication: MESOTHELIOMA
     Route: 042
     Dates: start: 20041021, end: 20050427
  2. ALIMTA [Suspect]
     Indication: MESOTHELIOMA
     Route: 042
     Dates: start: 20041021, end: 20050427
  3. PROPAFENONE [Concomitant]
     Indication: CARDIAC FIBRILLATION
     Dates: start: 20020101
  4. WARFARIN SODIUM [Concomitant]
     Indication: JUGULAR VEIN THROMBOSIS
     Dates: start: 20041216
  5. TIZANIDINE HCL [Concomitant]
     Indication: CHEST PAIN
     Dates: start: 20020101
  6. DEXAMETHASONE [Concomitant]
     Dates: start: 20041020
  7. FINASTERIDE [Concomitant]
     Indication: BENIGN PROSTATIC HYPERPLASIA
     Dates: start: 20020101
  8. FOLIC ACID [Concomitant]
     Dates: start: 20041006
  9. VITAMIN B-12 [Concomitant]
     Dates: start: 20041007
  10. OMEPRAZOLE [Concomitant]
     Indication: ABDOMINAL PAIN UPPER
     Dates: start: 20041020

REACTIONS (4)
  - LEUKOPENIA [None]
  - PNEUMONITIS [None]
  - RESPIRATORY FAILURE [None]
  - SEPTIC SHOCK [None]
